FAERS Safety Report 5031271-9 (Version None)
Quarter: 2006Q2

REPORT INFORMATION
  Report Type: 
  Country: None (occurrence: None)
  Receive Date: 20060621
  Receipt Date: 20060612
  Transmission Date: 20061013
  Serious: Yes (Death)
  Sender: FDA-Public Use
  Company Number: HU-BRISTOL-MYERS SQUIBB COMPANY-13408729

PATIENT
  Age: 62 Year
  Sex: Female

DRUGS (5)
  1. PACLITAXEL [Suspect]
     Indication: OVARIAN CANCER
     Route: 042
  2. CARBOPLATIN [Suspect]
     Indication: OVARIAN CANCER
     Route: 042
  3. DEXAMETHASONE TAB [Concomitant]
     Indication: PREMEDICATION
     Route: 048
  4. DIPHENHYDRAMINE HCL [Concomitant]
     Indication: PREMEDICATION
     Route: 042
  5. RANITIDINE [Concomitant]
     Indication: PREMEDICATION
     Route: 042

REACTIONS (1)
  - PNEUMONITIS [None]
